FAERS Safety Report 14321283 (Version 2)
Quarter: 2017Q4

REPORT INFORMATION
  Report Type: Spontaneous
  Country: US (occurrence: US)
  Receive Date: 20171223
  Receipt Date: 20171223
  Transmission Date: 20180321
  Serious: Yes (Other)
  Sender: FDA-Public Use
  Company Number: PHHY2016US150623

PATIENT
  Age: 33 Year
  Sex: Female

DRUGS (9)
  1. CARBIDOPA AND LEVODOPA [Suspect]
     Active Substance: CARBIDOPA\LEVODOPA
     Indication: FALL
  2. ROPINIROLE. [Suspect]
     Active Substance: ROPINIROLE
     Indication: PARKINSONISM
     Route: 065
  3. ROPINIROLE. [Suspect]
     Active Substance: ROPINIROLE
     Indication: GAIT DISTURBANCE
  4. CARBIDOPA AND LEVODOPA [Suspect]
     Active Substance: CARBIDOPA\LEVODOPA
     Indication: PARKINSONISM
     Dosage: UNK
     Route: 065
  5. ENTACAPONE. [Suspect]
     Active Substance: ENTACAPONE
     Indication: FALL
  6. ROPINIROLE. [Suspect]
     Active Substance: ROPINIROLE
     Indication: FALL
  7. CARBIDOPA AND LEVODOPA [Suspect]
     Active Substance: CARBIDOPA\LEVODOPA
     Indication: GAIT DISTURBANCE
  8. ENTACAPONE. [Suspect]
     Active Substance: ENTACAPONE
     Indication: PARKINSONISM
     Dosage: UNK
     Route: 065
  9. ENTACAPONE. [Suspect]
     Active Substance: ENTACAPONE
     Indication: GAIT DISTURBANCE

REACTIONS (3)
  - Confusional state [Unknown]
  - Somnolence [Unknown]
  - Drug ineffective [Unknown]
